FAERS Safety Report 8037040-X (Version None)
Quarter: 2012Q1

REPORT INFORMATION
  Report Type: 
  Country: None (occurrence: None)
  Receive Date: 20120111
  Receipt Date: 20120105
  Transmission Date: 20120608
  Serious: Yes (Hospitalization)
  Sender: FDA-Public Use
  Company Number: US-GLAXOSMITHKLINE-A0791883A

PATIENT
  Age: 36 Year
  Sex: Female
  Weight: 121.8 kg

DRUGS (2)
  1. AVANDIA [Suspect]
     Indication: DIABETES MELLITUS
     Dosage: 8MG PER DAY
     Route: 048
     Dates: start: 19980101, end: 20061202
  2. AVANDAMET [Suspect]
     Indication: DIABETES MELLITUS
     Dates: end: 20050501

REACTIONS (4)
  - ACUTE MYOCARDIAL INFARCTION [None]
  - PAIN [None]
  - CARDIOVASCULAR DISORDER [None]
  - CORONARY ARTERY DISEASE [None]
